FAERS Safety Report 7636581-4 (Version None)
Quarter: 2011Q3

REPORT INFORMATION
  Report Type: 
  Country: None (occurrence: None)
  Receive Date: 20110719
  Receipt Date: 20110705
  Transmission Date: 20111222
  Serious: Yes (Other)
  Sender: FDA-Public Use
  Company Number: JHP201100273

PATIENT
  Age: 27 Year
  Sex: Male

DRUGS (1)
  1. KETALAR [Suspect]
     Indication: DRUG ABUSE
     Dosage: 6 G, DAILY IN SPLIT DOSES, NASAL
     Route: 045

REACTIONS (10)
  - CHOLESTASIS [None]
  - POLLAKIURIA [None]
  - BLADDER DISORDER [None]
  - REDUCED BLADDER CAPACITY [None]
  - INTENTIONAL DRUG MISUSE [None]
  - HAEMATURIA [None]
  - CYSTOSCOPY ABNORMAL [None]
  - CYSTITIS NONINFECTIVE [None]
  - NOCTURIA [None]
  - ABDOMINAL PAIN UPPER [None]
